FAERS Safety Report 16108928 (Version 2)
Quarter: 2019Q2

REPORT INFORMATION
  Report Type: Spontaneous
  Country: US (occurrence: US)
  Receive Date: 20190323
  Receipt Date: 20190620
  Transmission Date: 20190711
  Serious: No
  Sender: FDA-Public Use
  Company Number: US-THERAPEUTICSMD-2019TMD00185

PATIENT
  Age: 56 Year
  Sex: Female
  Weight: 81.63 kg

DRUGS (1)
  1. IMVEXXY [Suspect]
     Active Substance: ESTRADIOL
     Indication: VULVOVAGINAL DRYNESS
     Dosage: 10 ?G, 2X/WEEK BEFORE BED
     Route: 067
     Dates: start: 201901, end: 201902

REACTIONS (5)
  - Rash pruritic [Recovering/Resolving]
  - Dry skin [Recovering/Resolving]
  - Off label use [Recovered/Resolved]
  - Swelling of eyelid [Recovered/Resolved]
  - Drug hypersensitivity [Recovering/Resolving]

NARRATIVE: CASE EVENT DATE: 201901
